FAERS Safety Report 15011780 (Version 1)
Quarter: 2018Q2

REPORT INFORMATION
  Report Type: Spontaneous
  Country: FR (occurrence: FR)
  Receive Date: 20180614
  Receipt Date: 20180614
  Transmission Date: 20180711
  Serious: Yes (Hospitalization, Other)
  Sender: FDA-Public Use
  Company Number: FR-OTSUKA-2018_013883

PATIENT
  Age: 15 Year
  Sex: Male
  Weight: 130 kg

DRUGS (1)
  1. ABILIFY [Suspect]
     Active Substance: ARIPIPRAZOLE
     Indication: TOURETTE^S DISORDER
     Dosage: 5 MG, QD
     Route: 048
     Dates: start: 20070404

REACTIONS (4)
  - Weight increased [Not Recovered/Not Resolved]
  - Exhibitionism [Not Recovered/Not Resolved]
  - Depression [Not Recovered/Not Resolved]
  - Hypersexuality [Not Recovered/Not Resolved]

NARRATIVE: CASE EVENT DATE: 20100804
